FAERS Safety Report 4925637-2 (Version None)
Quarter: 2006Q1

REPORT INFORMATION
  Report Type: 
  Country: None (occurrence: None)
  Receive Date: 20060228
  Receipt Date: 20050112
  Transmission Date: 20060701
  Serious: No
  Sender: FDA-Public Use
  Company Number: US-GLAXOSMITHKLINE-A0540450A

PATIENT
  Age: 48 Year
  Sex: Female

DRUGS (5)
  1. LAMICTAL [Suspect]
     Indication: BIPOLAR DISORDER
     Route: 048
     Dates: start: 20040126, end: 20050110
  2. CLONOPIN [Concomitant]
  3. LITHIUM [Concomitant]
  4. HYDROCHLOROTHIAZIDE [Concomitant]
     Dates: end: 20050110
  5. DEPAKOTE [Concomitant]

REACTIONS (3)
  - EYE SWELLING [None]
  - RASH MACULAR [None]
  - THROAT TIGHTNESS [None]
